FAERS Safety Report 9779735 (Version 1)
Quarter: 2013Q4

REPORT INFORMATION
  Report Type: Spontaneous
  Country: US (occurrence: US)
  Receive Date: 20131223
  Receipt Date: 20131223
  Transmission Date: 20140711
  Serious: Yes (Other)
  Sender: FDA-Public Use
  Company Number: US-GLAXOSMITHKLINE-A1054297A

PATIENT
  Age: 43 Year
  Sex: Female

DRUGS (10)
  1. FLOVENT [Suspect]
     Indication: BRONCHITIS
     Dosage: 2PUFF TWICE PER DAY
     Route: 055
     Dates: start: 20131209
  2. VENTOLIN [Suspect]
     Indication: BRONCHITIS
     Dosage: 2PUFF AS REQUIRED
     Route: 055
     Dates: start: 20131206
  3. FLUTICASONE PROPIONATE [Concomitant]
  4. ROBITUSSIN [Concomitant]
  5. BENZONATATE [Concomitant]
  6. PREDNISONE [Concomitant]
  7. ZITHROMAX [Concomitant]
  8. SUDAFED [Concomitant]
  9. CLARITIN [Concomitant]
  10. ZYRTEC [Concomitant]

REACTIONS (2)
  - Pneumonia [Not Recovered/Not Resolved]
  - Vision blurred [Not Recovered/Not Resolved]
